FAERS Safety Report 13053417 (Version 3)
Quarter: 2017Q1

REPORT INFORMATION
  Report Type: Report from Study
  Country: None (occurrence: AT)
  Receive Date: 20161222
  Receipt Date: 20170227
  Transmission Date: 20170428
  Serious: Yes (Hospitalization)
  Sender: FDA-Public Use
  Company Number: AT-ABBVIE-16K-009-1816573-00

PATIENT
  Sex: Female

DRUGS (2)
  1. DUODOPA [Suspect]
     Active Substance: CARBIDOPA\LEVODOPA
     Dosage: CR DAYTIME: 5.5ML/H
     Route: 050
  2. DUODOPA [Suspect]
     Active Substance: CARBIDOPA\LEVODOPA
     Indication: PARKINSON^S DISEASE
     Dosage: 16H THERAPY: MD: 6.0ML, CR: 5.0 ML/H, ED: 2.5 ML
     Route: 050
     Dates: start: 20141212

REACTIONS (4)
  - Device deployment issue [Unknown]
  - Pyrexia [Unknown]
  - General physical health deterioration [Unknown]
  - Chills [Unknown]

NARRATIVE: CASE EVENT DATE: 2016
